FAERS Safety Report 18349632 (Version 1)
Quarter: 2020Q4

REPORT INFORMATION
  Report Type: Spontaneous
  Country: US (occurrence: US)
  Receive Date: 20201006
  Receipt Date: 20201006
  Transmission Date: 20210114
  Serious: Yes (Life-Threatening, Hospitalization)
  Sender: FDA-Public Use
  Company Number: US-MYLANLABS-2020M1084173

PATIENT
  Age: 2 Year
  Sex: Female
  Weight: 11 kg

DRUGS (7)
  1. SALBUTAMOL [Suspect]
     Active Substance: ALBUTEROL
     Indication: STATUS ASTHMATICUS
     Dosage: INFUSION; CONTINUOUS DRIP
     Route: 041
  2. TERBUTALINE [Suspect]
     Active Substance: TERBUTALINE
     Indication: STATUS ASTHMATICUS
     Dosage: INFUSION; CONTINUOUS DRIP
     Route: 041
  3. MAGNESIUM [Suspect]
     Active Substance: MAGNESIUM
     Indication: STATUS ASTHMATICUS
     Dosage: INFUSION; CONTINUOUS DRIP
     Route: 041
  4. AMINOPHYLLINE. [Suspect]
     Active Substance: AMINOPHYLLINE
     Indication: STATUS ASTHMATICUS
     Dosage: INFUSION; CONTINUOUS DRIP
     Route: 041
  5. IPRATROPIUM BROMIDE. [Concomitant]
     Active Substance: IPRATROPIUM BROMIDE
     Indication: STATUS ASTHMATICUS
     Dosage: UNK
     Route: 065
  6. METHYLPREDNISOLONE. [Concomitant]
     Active Substance: METHYLPREDNISOLONE
     Indication: STATUS ASTHMATICUS
     Dosage: UNK
     Route: 042
  7. SALBUTAMOL [Suspect]
     Active Substance: ALBUTEROL
     Indication: STATUS ASTHMATICUS
     Dosage: NEBULISATION
     Route: 065

REACTIONS (2)
  - Therapy non-responder [Unknown]
  - Off label use [Unknown]
